FAERS Safety Report 12067400 (Version 1)
Quarter: 2016Q1

REPORT INFORMATION
  Report Type: Spontaneous
  Country: US (occurrence: US)
  Receive Date: 20160211
  Receipt Date: 20160211
  Transmission Date: 20160526
  Serious: No
  Sender: FDA-Public Use
  Company Number: US-PERRIGO-15US002242

PATIENT
  Age: 2 Month
  Sex: Female
  Weight: 5.67 kg

DRUGS (1)
  1. IBUPROFEN. [Suspect]
     Active Substance: IBUPROFEN
     Indication: PROPHYLAXIS
     Dosage: 25 MG, SINGLE
     Route: 048
     Dates: start: 20150213, end: 20150213

REACTIONS (3)
  - Off label use [Recovered/Resolved]
  - No adverse event [Recovered/Resolved]
  - Expired product administered [Recovered/Resolved]

NARRATIVE: CASE EVENT DATE: 20150213
